FAERS Safety Report 4679293-1 (Version None)
Quarter: 2005Q2

REPORT INFORMATION
  Report Type: 
  Country: None (occurrence: None)
  Receive Date: 20050531
  Receipt Date: 20050516
  Transmission Date: 20051028
  Serious: Yes (Death)
  Sender: FDA-Public Use
  Company Number: 2005BI009700

PATIENT
  Age: 70 Year
  Sex: Male
  Weight: 112.0385 kg

DRUGS (2)
  1. AMEVIVE [Suspect]
     Indication: PSORIASIS
     Dosage: 15 MG; QW; IM
     Route: 030
     Dates: start: 20040510, end: 20040831
  2. TMC OINTMENT [Concomitant]

REACTIONS (2)
  - FALL [None]
  - HEAD INJURY [None]
